FAERS Safety Report 11118558 (Version 2)
Quarter: 2015Q2

REPORT INFORMATION
  Report Type: Spontaneous
  Country: FR (occurrence: FR)
  Receive Date: 20150518
  Receipt Date: 20150629
  Transmission Date: 20150821
  Serious: Yes (Other)
  Sender: FDA-Public Use
  Company Number: FR-JNJFOC-20150510182

PATIENT
  Age: 37 Year
  Sex: Male

DRUGS (1)
  1. PREZISTA [Suspect]
     Active Substance: DARUNAVIR ETHANOLATE
     Indication: HIV INFECTION
     Route: 065

REACTIONS (2)
  - Lipodystrophy acquired [Unknown]
  - Adverse drug reaction [Unknown]
